FAERS Safety Report 8623520-2 (Version None)
Quarter: 2012Q3

REPORT INFORMATION
  Report Type: 
  Country: None (occurrence: None)
  Receive Date: 20120824
  Receipt Date: 20120824
  Transmission Date: 20120928
  Serious: No
  Sender: FDA-Public Use
  Company Number: None

PATIENT
  Age: 36 Year
  Sex: Female

DRUGS (1)
  1. TRAZODONE HCL [Suspect]

REACTIONS (6)
  - OEDEMA PERIPHERAL [None]
  - SWELLING FACE [None]
  - SWELLING [None]
  - NONSPECIFIC REACTION [None]
  - PRURITUS [None]
  - LOCAL SWELLING [None]
